FAERS Safety Report 6274058-1 (Version None)
Quarter: 2009Q3

REPORT INFORMATION
  Report Type: 
  Country: None (occurrence: None)
  Receive Date: 20090720
  Receipt Date: 20090716
  Transmission Date: 20100115
  Serious: Yes (Life-Threatening)
  Sender: FDA-Public Use
  Company Number: FR-ASTRAZENECA-2009SE04998

PATIENT
  Age: 27860 Day
  Sex: Female

DRUGS (8)
  1. DIPRIVAN [Suspect]
     Indication: INDUCTION OF ANAESTHESIA
     Route: 042
     Dates: start: 20090605, end: 20090605
  2. DIPRIVAN [Suspect]
     Route: 042
  3. CELOCURINE [Suspect]
     Indication: INDUCTION OF ANAESTHESIA
     Route: 042
     Dates: start: 20090605, end: 20090605
  4. ETOMIDATE [Suspect]
     Indication: INDUCTION OF ANAESTHESIA
     Route: 042
     Dates: start: 20090605, end: 20090605
  5. SUFENTA PRESERVATIVE FREE [Suspect]
     Indication: INDUCTION OF ANAESTHESIA
     Route: 042
     Dates: start: 20090605, end: 20090605
  6. SUFENTA PRESERVATIVE FREE [Suspect]
     Route: 042
  7. TRACRIUM [Concomitant]
     Indication: INDUCTION OF ANAESTHESIA
     Route: 042
     Dates: start: 20090605
  8. AUGMENTIN [Concomitant]
     Route: 042
     Dates: start: 20090605

REACTIONS (1)
  - ANAPHYLACTIC SHOCK [None]
